FAERS Safety Report 12854304 (Version 1)
Quarter: 2016Q4

REPORT INFORMATION
  Report Type: Spontaneous
  Country: US (occurrence: US)
  Receive Date: 20161017
  Receipt Date: 20161017
  Transmission Date: 20170207
  Serious: No
  Sender: FDA-Public Use
  Company Number: US-PFIZER INC-2016481013

PATIENT

DRUGS (1)
  1. DEPO-TESTOSTERONE [Suspect]
     Active Substance: TESTOSTERONE CYPIONATE
     Dosage: UNK

REACTIONS (3)
  - Conjunctivitis [Unknown]
  - Seasonal allergy [Unknown]
  - Rhinitis [Unknown]
